FAERS Safety Report 21273038 (Version 2)
Quarter: 2022Q4

REPORT INFORMATION
  Report Type: Spontaneous
  Country: JP (occurrence: JP)
  Receive Date: 20220831
  Receipt Date: 20221007
  Transmission Date: 20230112
  Serious: Yes (Death, Hospitalization, Other)
  Sender: FDA-Public Use
  Company Number: JP-MSD-M2022-28119

PATIENT
  Age: 8 Decade
  Sex: Male

DRUGS (1)
  1. KEYTRUDA [Suspect]
     Active Substance: PEMBROLIZUMAB
     Indication: Colon cancer
     Dosage: 200 MILLIGRAM, Q3W
     Route: 041
     Dates: start: 20220608, end: 20220630

REACTIONS (6)
  - Immune-mediated hypothyroidism [Recovered/Resolved]
  - Oedema peripheral [Not Recovered/Not Resolved]
  - Immune-mediated hepatic disorder [Not Recovered/Not Resolved]
  - Immune-mediated renal disorder [Not Recovered/Not Resolved]
  - Malignant neoplasm progression [Fatal]
  - Malaise [Recovered/Resolved]

NARRATIVE: CASE EVENT DATE: 20220601
